FAERS Safety Report 18986433 (Version 1)
Quarter: 2021Q1

REPORT INFORMATION
  Report Type: Spontaneous
  Country: BR (occurrence: BR)
  Receive Date: 20210309
  Receipt Date: 20210309
  Transmission Date: 20210420
  Serious: Yes (Other)
  Sender: FDA-Public Use
  Company Number: BR-TEVA-2021-BR-1888921

PATIENT
  Age: 87 Year
  Sex: Female
  Weight: 85.9 kg

DRUGS (7)
  1. SUPRENIQ 500MG [Suspect]
     Active Substance: FULVESTRANT
     Indication: BREAST CANCER FEMALE
     Route: 030
  2. OMEPRAZOLE 20MG [Concomitant]
     Active Substance: OMEPRAZOLE
     Indication: GASTRIC DISORDER
     Dosage: 20 MILLIGRAM DAILY;
     Route: 048
     Dates: start: 20200629, end: 20201225
  3. SERTRALINE 500MG [Concomitant]
     Indication: DEPRESSION
     Dosage: 500 MILLIGRAM DAILY;
     Route: 048
     Dates: start: 20200629, end: 20201225
  4. ALENDRONATE SODIUM 70MG [Concomitant]
     Active Substance: ALENDRONATE SODIUM
     Indication: CALCIUM METABOLISM DISORDER
     Route: 048
     Dates: start: 20201023, end: 20201225
  5. DIPYRONE 500MG [Concomitant]
     Indication: ANALGESIC THERAPY
     Dosage: 2000 MILLIGRAM DAILY;
     Route: 048
     Dates: start: 20200629, end: 20201225
  6. CHOLECALCIFEROL 1000UI [Concomitant]
     Indication: VITAMIN SUPPLEMENTATION
     Dosage: 7 DROPS ONCE A DAY
     Route: 048
     Dates: start: 20200629, end: 20201225
  7. RIVAROXABAN 20MG [Concomitant]
     Active Substance: RIVAROXABAN
     Indication: ANTICOAGULANT THERAPY
     Dosage: 20 MILLIGRAM DAILY;
     Route: 048
     Dates: start: 20200629, end: 20201225

REACTIONS (6)
  - Fall [Unknown]
  - Injection site pain [Recovering/Resolving]
  - Injection site injury [Recovering/Resolving]
  - Injection site erythema [Recovering/Resolving]
  - Injection site necrosis [Recovering/Resolving]
  - Injection site exfoliation [Recovering/Resolving]

NARRATIVE: CASE EVENT DATE: 20201126
